FAERS Safety Report 10757108 (Version 1)
Quarter: 2015Q1

REPORT INFORMATION
  Report Type: Spontaneous
  Country: PH (occurrence: PH)
  Receive Date: 20150203
  Receipt Date: 20150203
  Transmission Date: 20150721
  Serious: Yes (Other)
  Sender: FDA-Public Use
  Company Number: PH-009507513-1502PHL000274

PATIENT
  Age: 64 Year
  Sex: Male

DRUGS (4)
  1. JANUMET [Suspect]
     Active Substance: METFORMIN HYDROCHLORIDE\SITAGLIPTIN PHOSPHATE
     Indication: DIABETES MELLITUS
     Dosage: ONE TABLET TWICE A DAY
     Route: 048
     Dates: start: 2012, end: 201411
  2. JANUVIA [Suspect]
     Active Substance: SITAGLIPTIN PHOSPHATE
     Dosage: 50 MG, ONCE A DAY
     Route: 048
     Dates: start: 201411
  3. DIAMICRON [Concomitant]
     Active Substance: GLICLAZIDE
     Dosage: ONCE A DAY
     Dates: start: 2012, end: 201411
  4. GLUBITOR [Concomitant]
     Dosage: UNK
     Dates: start: 201411

REACTIONS (2)
  - Blood creatinine increased [Recovering/Resolving]
  - Rectal cancer stage III [Recovering/Resolving]

NARRATIVE: CASE EVENT DATE: 2014
